FAERS Safety Report 11717882 (Version 1)
Quarter: 2015Q4

REPORT INFORMATION
  Report Type: Spontaneous
  Country: US (occurrence: US)
  Receive Date: 20151110
  Receipt Date: 20151110
  Transmission Date: 20160304
  Serious: No
  Sender: FDA-Public Use
  Company Number: US-009507513-1511USA001232

PATIENT
  Sex: Female

DRUGS (1)
  1. ISENTRESS [Suspect]
     Active Substance: RALTEGRAVIR POTASSIUM
     Dosage: UNKNOWN
     Route: 048

REACTIONS (4)
  - Feeling abnormal [Unknown]
  - Paraesthesia [Unknown]
  - Limb discomfort [Unknown]
  - Wrong technique in product usage process [Unknown]
